FAERS Safety Report 4758836-3 (Version None)
Quarter: 2005Q3

REPORT INFORMATION
  Report Type: 
  Country: None (occurrence: None)
  Receive Date: 20050901
  Receipt Date: 20050823
  Transmission Date: 20060218
  Serious: Yes (Death, Hospitalization)
  Sender: FDA-Public Use
  Company Number: 200517543GDDC

PATIENT
  Age: 32 Year
  Sex: Female

DRUGS (2)
  1. ARAVA [Suspect]
     Indication: RHEUMATOID ARTHRITIS
     Dosage: DOSE: UNK
  2. UNKNOWN DRUG [Concomitant]

REACTIONS (4)
  - ABDOMINAL PAIN [None]
  - CARDIAC DISORDER [None]
  - CARDIAC FAILURE [None]
  - VOMITING [None]
